FAERS Safety Report 9666067 (Version 1)
Quarter: 2013Q4

REPORT INFORMATION
  Report Type: Spontaneous
  Country: US (occurrence: None)
  Receive Date: 20131031
  Receipt Date: 20131031
  Transmission Date: 20140711
  Serious: Yes (Other)
  Sender: FDA-Public Use
  Company Number: SYM-2013-12123

PATIENT
  Sex: 0

DRUGS (3)
  1. FLUOROURACIL [Suspect]
     Indication: ANAL SQUAMOUS CELL CARCINOMA
  2. MITOMYCIN [Suspect]
     Indication: ANAL SQUAMOUS CELL CARCINOMA
  3. THERAPEUTIC RADIOPHARMACEUTICALS (THERAPEUTIC RADIOPHARMACEUTICALS) [Suspect]
     Indication: ANAL SQUAMOUS CELL CARCINOMA

REACTIONS (2)
  - Off label use [None]
  - Gastrointestinal toxicity [None]
